FAERS Safety Report 13738850 (Version 2)
Quarter: 2017Q3

REPORT INFORMATION
  Report Type: Spontaneous
  Country: JP (occurrence: JP)
  Receive Date: 20170710
  Receipt Date: 20170911
  Transmission Date: 20171127
  Serious: Yes (Hospitalization)
  Sender: FDA-Public Use
  Company Number: JP-SA-2017SA122451

PATIENT
  Age: 54 Year
  Sex: Female

DRUGS (6)
  1. DOCETAXEL. [Suspect]
     Active Substance: DOCETAXEL
     Indication: ADJUVANT THERAPY
     Dosage: FREQUENCY EVERY 4 WEEKS
     Route: 042
     Dates: start: 20160215, end: 20160215
  2. 5 FU [Concomitant]
     Active Substance: FLUOROURACIL
     Indication: ADJUVANT THERAPY
     Dosage: EVERY 4 WEEKS
     Route: 065
     Dates: start: 20160215, end: 20160219
  3. CISPLATIN. [Concomitant]
     Active Substance: CISPLATIN
     Indication: ADJUVANT THERAPY
     Dosage: EVERY 4 WEEKS
     Route: 065
     Dates: start: 20160215, end: 20160219
  4. CISPLATIN. [Concomitant]
     Active Substance: CISPLATIN
     Indication: OESOPHAGEAL CARCINOMA
     Dosage: EVERY 4 WEEKS
     Route: 065
     Dates: start: 20160215, end: 20160219
  5. DOCETAXEL. [Suspect]
     Active Substance: DOCETAXEL
     Indication: OESOPHAGEAL CARCINOMA
     Dosage: FREQUENCY EVERY 4 WEEKS
     Route: 042
     Dates: start: 20160215, end: 20160215
  6. 5 FU [Concomitant]
     Active Substance: FLUOROURACIL
     Indication: OESOPHAGEAL CARCINOMA
     Dosage: EVERY 4 WEEKS
     Route: 065
     Dates: start: 20160215, end: 20160219

REACTIONS (5)
  - Pyrexia [Recovering/Resolving]
  - Neutrophil count decreased [Recovering/Resolving]
  - Tenderness [Recovering/Resolving]
  - Acute focal bacterial nephritis [Recovered/Resolved]
  - Abdominal mass [Recovering/Resolving]

NARRATIVE: CASE EVENT DATE: 20160404
